FAERS Safety Report 10060510 (Version 2)
Quarter: 2014Q2

REPORT INFORMATION
  Report Type: Spontaneous
  Country: US (occurrence: US)
  Receive Date: 20140404
  Receipt Date: 20140502
  Transmission Date: 20141212
  Serious: No
  Sender: FDA-Public Use
  Company Number: US-BAYER-2014-050235

PATIENT
  Sex: Female

DRUGS (1)
  1. MENOSTAR [Suspect]
     Indication: HOT FLUSH
     Route: 062

REACTIONS (2)
  - Product adhesion issue [None]
  - Drug dose omission [None]
